FAERS Safety Report 22359628 (Version 1)
Quarter: 2023Q2

REPORT INFORMATION
  Report Type: Report from Study
  Country: KR (occurrence: KR)
  Receive Date: 20230524
  Receipt Date: 20230524
  Transmission Date: 20230722
  Serious: Yes (Hospitalization, Other)
  Sender: FDA-Public Use
  Company Number: KR-MYLANLABS-2023M1051553

PATIENT
  Age: 33 Year
  Sex: Female

DRUGS (12)
  1. TRASTUZUMAB [Suspect]
     Active Substance: TRASTUZUMAB
     Indication: Breast cancer female
     Dosage: UNK
     Route: 042
     Dates: start: 20180223
  2. TRASTUZUMAB [Suspect]
     Active Substance: TRASTUZUMAB
     Dosage: UNK, Q3W
     Route: 042
     Dates: start: 20180316
  3. LANSOPRAZOLE [Concomitant]
     Active Substance: LANSOPRAZOLE
     Indication: Prophylaxis
     Dosage: 15 MILLIGRAM, START 05-MAR-2018
     Route: 048
  4. ACETAMINOPHEN [Concomitant]
     Active Substance: ACETAMINOPHEN
     Indication: Myalgia
     Dosage: 1300 MILLIGRAM (FILM-COATED, EXTENDED RELEASE TABLET)
     Route: 048
     Dates: start: 20180224, end: 20180305
  5. LAMIVUDINE [Concomitant]
     Active Substance: LAMIVUDINE
     Indication: Acute hepatitis B
     Dosage: 100 MILLIGRAM (SYRUP, SOLUTION)
     Route: 048
     Dates: start: 20180223
  6. ACETAMINOPHEN\TRAMADOL HYDROCHLORIDE [Concomitant]
     Active Substance: ACETAMINOPHEN\TRAMADOL HYDROCHLORIDE
     Indication: Prophylaxis
     Dosage: UNK (IMMEDIATE RELEASE, FILM-COATED TABLET)
     Route: 048
     Dates: start: 20170223
  7. ALMAGATE [Concomitant]
     Active Substance: ALMAGATE
     Indication: Prophylaxis
     Dosage: 6 GRAM
     Route: 048
     Dates: start: 20180224, end: 20180226
  8. KETOROLAC TROMETHAMINE [Concomitant]
     Active Substance: KETOROLAC TROMETHAMINE
     Dosage: UNK, START 19-JUN-2018
     Route: 017
     Dates: end: 20180619
  9. CELECOXIB [Concomitant]
     Active Substance: CELECOXIB
     Indication: Arthritis
     Dosage: 400 MILLIGRAM
     Route: 048
  10. FEXOFENADINE HYDROCHLORIDE [Concomitant]
     Active Substance: FEXOFENADINE HYDROCHLORIDE
     Indication: Pneumonia
     Dosage: 120 MILLIGRAM, START 09-NOV-2018
     Route: 048
     Dates: end: 20181116
  11. RANITIDINE HYDROCHLORIDE;SUCRALFATE;TRIPOTASSIUM DICITRATOBISMUTHATE [Concomitant]
     Indication: Gastritis
     Dosage: 1 DOSAGE FORM, START 10-JUN-2018
     Route: 048
     Dates: end: 20180616
  12. CARBOPLATIN [Concomitant]
     Active Substance: CARBOPLATIN
     Indication: Breast cancer female
     Dosage: 816.42 MILLIGRAM
     Route: 042
     Dates: start: 20180223, end: 20180223

REACTIONS (13)
  - Neutrophil count decreased [Recovered/Resolved]
  - Pneumonitis [Recovering/Resolving]
  - Dyskinesia [Recovering/Resolving]
  - Abdominal distension [Recovering/Resolving]
  - Onychomycosis [Recovered/Resolved]
  - Diarrhoea [Recovered/Resolved]
  - Myalgia [Recovered/Resolved]
  - Nausea [Recovering/Resolving]
  - Mucosal inflammation [Recovered/Resolved]
  - Rash [Recovering/Resolving]
  - Dizziness [Recovering/Resolving]
  - Pyrexia [Recovered/Resolved]
  - Asthenia [Recovered/Resolved]

NARRATIVE: CASE EVENT DATE: 20180224
